FAERS Safety Report 11734692 (Version 1)
Quarter: 2015Q4

REPORT INFORMATION
  Report Type: Spontaneous
  Country: US (occurrence: US)
  Receive Date: 20151113
  Receipt Date: 20151113
  Transmission Date: 20160304
  Serious: Yes (Other)
  Sender: FDA-Public Use
  Company Number: US-FRESENIUS KABI-FK201505811

PATIENT
  Age: 30 Week
  Sex: Male

DRUGS (11)
  1. ESMOLOL [Suspect]
     Active Substance: ESMOLOL HYDROCHLORIDE
     Indication: DRUG THERAPY
     Route: 042
  2. METOPROLOL INJECTION (MANUFACTURER UNKNOWN) [Suspect]
     Active Substance: METOPROLOL
     Indication: BLOOD PRESSURE MANAGEMENT
     Route: 048
  3. LABETALOL [Suspect]
     Active Substance: LABETALOL\LABETALOL HYDROCHLORIDE
     Indication: BLOOD PRESSURE MANAGEMENT
     Route: 048
  4. NITROPRUSSIDE [Suspect]
     Active Substance: NITROPRUSSIDE
     Indication: BLOOD PRESSURE MANAGEMENT
  5. CLONIDINE HYDROCHLORIDE INJECTION (MANUFACTURER UNKNOWN) (CLONIDINE HYDROCHLORIDE) (CLONIDINE HYDROCHLORIDE) [Suspect]
     Active Substance: CLONIDINE HYDROCHLORIDE
     Indication: PRODUCT USED FOR UNKNOWN INDICATION
     Route: 048
  6. LABETALOL [Suspect]
     Active Substance: LABETALOL\LABETALOL HYDROCHLORIDE
     Indication: DRUG THERAPY
     Route: 065
  7. NITROPRUSSIDE [Suspect]
     Active Substance: NITROPRUSSIDE
     Indication: DRUG THERAPY
     Route: 065
  8. ESMOLOL [Suspect]
     Active Substance: ESMOLOL HYDROCHLORIDE
     Indication: BLOOD PRESSURE MANAGEMENT
  9. METOPROLOL INJECTION (MANUFACTURER UNKNOWN) [Suspect]
     Active Substance: METOPROLOL
     Indication: DRUG THERAPY
     Route: 065
  10. DILTIAZEM [Suspect]
     Active Substance: DILTIAZEM
     Indication: DRUG THERAPY
     Route: 042
  11. DILTIAZEM [Suspect]
     Active Substance: DILTIAZEM
     Indication: BLOOD PRESSURE MANAGEMENT

REACTIONS (9)
  - Acute kidney injury [Unknown]
  - International normalised ratio increased [None]
  - Cardiomyopathy [Recovering/Resolving]
  - Liver function test abnormal [None]
  - Left ventricular dysfunction [None]
  - Intestinal ischaemia [Unknown]
  - Haemodynamic instability [None]
  - Abdominal compartment syndrome [Recovered/Resolved]
  - Hypoglycaemia [None]
